FAERS Safety Report 25713997 (Version 2)
Quarter: 2025Q4

REPORT INFORMATION
  Report Type: Report from Study
  Country: JP (occurrence: JP)
  Receive Date: 20250822
  Receipt Date: 20251004
  Transmission Date: 20260117
  Serious: Yes (Hospitalization)
  Sender: ABBVIE
  Company Number: JP-ABBVIE-6423196

PATIENT
  Age: 75 Year
  Sex: Female
  Weight: 42 kg

DRUGS (18)
  1. VYALEV [Suspect]
     Active Substance: FOSCARBIDOPA\FOSLEVODOPA
     Indication: Parkinson^s disease
     Dosage: STANDARD: 0.33 ML/H?LAST ADMIN DATE: NOV 2024
     Route: 058
     Dates: start: 20241106
  2. VYALEV [Suspect]
     Active Substance: FOSCARBIDOPA\FOSLEVODOPA
     Dosage: STANDARD: 0.27 ML/H?LAST ADMIN DATE: 2024
     Route: 058
     Dates: start: 20241029
  3. VYALEV [Suspect]
     Active Substance: FOSCARBIDOPA\FOSLEVODOPA
     Dosage: STANDARD: 0.41 ML/H
     Route: 058
     Dates: start: 20250204
  4. VYALEV [Suspect]
     Active Substance: FOSCARBIDOPA\FOSLEVODOPA
     Dosage: STANDARD: 0.30 ML/H?LAST ADMIN DATE: NOV 2024
     Route: 058
     Dates: start: 20241105
  5. VYALEV [Suspect]
     Active Substance: FOSCARBIDOPA\FOSLEVODOPA
     Dosage: STANDARD: 0.39 ML/H
     Route: 058
     Dates: start: 20241109
  6. VYALEV [Suspect]
     Active Substance: FOSCARBIDOPA\FOSLEVODOPA
     Dosage: STANDARD: 0.28 ML/H?LAST ADMIN DATE: NOV 2024
     Route: 058
     Dates: start: 20241104
  7. VYALEV [Suspect]
     Active Substance: FOSCARBIDOPA\FOSLEVODOPA
     Dosage: STANDARD: 0.35 ML/H?LAST ADMIN DATE: NOV 2024
     Route: 058
     Dates: start: 20241107
  8. VYALEV [Suspect]
     Active Substance: FOSCARBIDOPA\FOSLEVODOPA
     Dosage: STANDARD: 0.37 ML/H?LAST ADMIN DATE: NOV 2024
     Route: 058
     Dates: start: 20241108
  9. LUBIPROSTONE [Concomitant]
     Active Substance: LUBIPROSTONE
     Indication: Product used for unknown indication
     Route: 048
  10. CARBIDOPA AND LEVODOPA [Concomitant]
     Active Substance: CARBIDOPA\LEVODOPA
     Indication: Parkinson^s disease
     Dosage: TIME INTERVAL: 0.33333333 DAYS: 1050 MILLIGRAM
     Route: 048
     Dates: start: 20250304
  11. CARBIDOPA AND LEVODOPA [Concomitant]
     Active Substance: CARBIDOPA\LEVODOPA
     Indication: Parkinson^s disease
     Dosage: 50 MILLIGRAM
     Route: 048
     Dates: start: 20241108, end: 20241108
  12. CARBIDOPA AND LEVODOPA [Concomitant]
     Active Substance: CARBIDOPA\LEVODOPA
     Indication: Parkinson^s disease
     Dosage: 400 MILLIGRAM
     Route: 048
     Dates: start: 20241113, end: 20241125
  13. CARBIDOPA AND LEVODOPA [Concomitant]
     Active Substance: CARBIDOPA\LEVODOPA
     Indication: Parkinson^s disease
     Dosage: 300 MILLIGRAM
     Route: 048
     Dates: start: 20241112, end: 20241112
  14. CARBIDOPA AND LEVODOPA [Concomitant]
     Active Substance: CARBIDOPA\LEVODOPA
     Indication: Parkinson^s disease
     Dosage: TIME INTERVAL: 0.33333333 DAYS: 900 MILLIGRAM
     Route: 048
     Dates: start: 20241126, end: 20250303
  15. CARBIDOPA AND LEVODOPA [Concomitant]
     Active Substance: CARBIDOPA\LEVODOPA
     Indication: Parkinson^s disease
     Dosage: TIME INTERVAL: 0.14285714 DAYS: 700 MILLIGRAM?FIRST ADMIN DATE: NOV 2024?LAST ADMIN DATE: 28 NOV ...
     Route: 048
  16. CARBIDOPA AND LEVODOPA [Concomitant]
     Active Substance: CARBIDOPA\LEVODOPA
     Indication: Parkinson^s disease
     Dosage: 50 MILLIGRAM
     Route: 048
     Dates: start: 20241111, end: 20241111
  17. ROTIGOTINE [Concomitant]
     Active Substance: ROTIGOTINE
     Indication: Parkinson^s disease
     Dosage: 13.5 MILLIGRAM
     Route: 062
  18. SAFINAMIDE MESYLATE [Concomitant]
     Active Substance: SAFINAMIDE MESYLATE
     Indication: Parkinson^s disease
     Dosage: 100 MILLIGRAM
     Route: 048

REACTIONS (2)
  - Lymphoma [Not Recovered/Not Resolved]
  - Infusion site cellulitis [Recovering/Resolving]

NARRATIVE: CASE EVENT DATE: 20241204
